FAERS Safety Report 6581572-8 (Version None)
Quarter: 2010Q1

REPORT INFORMATION
  Report Type: 
  Country: None (occurrence: None)
  Receive Date: 20100211
  Receipt Date: 20100211
  Transmission Date: 20100710
  Serious: Yes (Other)
  Sender: FDA-Public Use
  Company Number: None

PATIENT
  Age: 76 Year
  Sex: Female
  Weight: 57.6068 kg

DRUGS (3)
  1. CITALOPRAM HYDROBROMIDE [Suspect]
     Indication: ANXIETY
     Dosage: 1 TAB QD PO
     Route: 048
     Dates: start: 20061201, end: 20071201
  2. CITALOPRAM HYDROBROMIDE [Suspect]
     Indication: DEPRESSION
     Dosage: 1 TAB QD PO
     Route: 048
     Dates: start: 20061201, end: 20071201
  3. CELEXA [Suspect]

REACTIONS (1)
  - DRUG INEFFECTIVE [None]
